FAERS Safety Report 9675712 (Version 1)
Quarter: 2013Q4

REPORT INFORMATION
  Report Type: Spontaneous
  Country: US (occurrence: US)
  Receive Date: 20131107
  Receipt Date: 20131107
  Transmission Date: 20140711
  Serious: Yes (Other)
  Sender: FDA-Public Use
  Company Number: US-JNJFOC-20131019211

PATIENT
  Sex: Male
  Weight: 124.74 kg

DRUGS (6)
  1. XARELTO [Suspect]
     Indication: DEEP VEIN THROMBOSIS
     Route: 048
     Dates: start: 2013
  2. BENICAR [Concomitant]
     Indication: HYPERTENSION
     Route: 048
  3. LEVOTHYROXINE [Concomitant]
     Indication: THYROID DISORDER
     Route: 048
  4. POTASSIUM [Concomitant]
     Route: 065
  5. ACCUPRIL [Concomitant]
     Indication: HYPERTENSION
     Route: 048
  6. NORVASC [Concomitant]
     Indication: HYPERTENSION
     Route: 048

REACTIONS (2)
  - Local swelling [Not Recovered/Not Resolved]
  - Inappropriate schedule of drug administration [Unknown]
